FAERS Safety Report 23925615 (Version 3)
Quarter: 2025Q1

REPORT INFORMATION
  Report Type: Report from Study
  Country: CA (occurrence: CA)
  Receive Date: 20240531
  Receipt Date: 20250120
  Transmission Date: 20250408
  Serious: Yes (Hospitalization, Other)
  Sender: GLAXOSMITHKLINE
  Company Number: CA-GLAXOSMITHKLINE-CA2023098891

PATIENT

DRUGS (10)
  1. MEPOLIZUMAB [Suspect]
     Active Substance: MEPOLIZUMAB
     Indication: Asthma
     Dosage: 100 MG, Q4W
     Route: 058
     Dates: start: 20210903
  2. VENTOLIN [Concomitant]
     Active Substance: ALBUTEROL SULFATE
     Indication: Product used for unknown indication
  3. ALVESCO [Concomitant]
     Active Substance: CICLESONIDE
     Indication: Product used for unknown indication
     Dosage: 2 PUFF(S), QD, 200MCG
  4. SINGULAIR [Concomitant]
     Active Substance: MONTELUKAST SODIUM
     Indication: Product used for unknown indication
     Dosage: 50 MG, QD (AT BEDTIME)
  5. FLUTICASONE FUROATE [Concomitant]
     Active Substance: FLUTICASONE FUROATE
     Indication: Product used for unknown indication
     Dosage: 2 PUFF(S), BID
  6. PREDNISONE [Concomitant]
     Active Substance: PREDNISONE
     Indication: Asthma
     Dates: start: 20220621, end: 20220626
  7. PREDNISONE [Concomitant]
     Active Substance: PREDNISONE
     Dates: start: 20230714
  8. SYNTHROID [Concomitant]
     Active Substance: LEVOTHYROXINE SODIUM
     Indication: Product used for unknown indication
  9. ADVAIR HFA [Concomitant]
     Active Substance: FLUTICASONE PROPIONATE\SALMETEROL XINAFOATE
     Indication: Product used for unknown indication
     Dosage: 1 PUFF(S), BID, 500 MCG
  10. WIXELA INHUB [Concomitant]
     Active Substance: FLUTICASONE PROPIONATE\SALMETEROL XINAFOATE
     Indication: Product used for unknown indication
     Dosage: 1 PUFF(S), BID, 250MCG/50MCG

REACTIONS (15)
  - Hospitalisation [Not Recovered/Not Resolved]
  - Sjogren^s syndrome [Unknown]
  - Eosinophilic granulomatosis with polyangiitis [Unknown]
  - Polymyositis [Unknown]
  - Dermatomyositis [Unknown]
  - Asthma [Unknown]
  - Serum sickness [Unknown]
  - Seasonal allergy [Unknown]
  - Serum ferritin increased [Unknown]
  - Musculoskeletal stiffness [Unknown]
  - Oral allergy syndrome [Unknown]
  - Sinus congestion [Unknown]
  - Wheezing [Unknown]
  - Gait disturbance [Unknown]
  - Venipuncture [Unknown]

NARRATIVE: CASE EVENT DATE: 20240313
